FAERS Safety Report 12357123 (Version 2)
Quarter: 2016Q2

REPORT INFORMATION
  Report Type: Spontaneous
  Country: DK (occurrence: DK)
  Receive Date: 20160511
  Receipt Date: 20160520
  Transmission Date: 20160815
  Serious: Yes (Hospitalization, Other)
  Sender: FDA-Public Use
  Company Number: ALCN2016DK003145

PATIENT
  Age: 71 Year
  Sex: Male
  Weight: 90 kg

DRUGS (2)
  1. MYDRIACYL [Concomitant]
     Active Substance: TROPICAMIDE
     Indication: ANGIOGRAM RETINA
     Dosage: UNK
     Route: 047
     Dates: start: 20151125
  2. FLUORESCEIN SODIUM. [Suspect]
     Active Substance: FLUORESCEIN SODIUM
     Indication: ANGIOGRAM RETINA
     Dosage: 5 ML, ONCE/SINGLE
     Route: 042
     Dates: start: 20151125, end: 20151125

REACTIONS (6)
  - Blood pressure decreased [Recovered/Resolved]
  - Paraesthesia oral [Unknown]
  - Cold sweat [Unknown]
  - Angina pectoris [Recovered/Resolved]
  - Malaise [Unknown]
  - Chest discomfort [Unknown]

NARRATIVE: CASE EVENT DATE: 20151125
